FAERS Safety Report 24533562 (Version 1)
Quarter: 2024Q4

REPORT INFORMATION
  Report Type: Spontaneous
  Country: ES (occurrence: ES)
  Receive Date: 20241022
  Receipt Date: 20241022
  Transmission Date: 20250114
  Serious: Yes (Hospitalization, Other)
  Sender: SANDOZ
  Company Number: ES-AEMPS-540458

PATIENT
  Age: 85 Year
  Sex: Male

DRUGS (1)
  1. QUETIAPINE FUMARATE [Suspect]
     Active Substance: QUETIAPINE FUMARATE
     Indication: Confusional state
     Dosage: 175 MG, QD (25 MG, 2-2-3)
     Route: 048
     Dates: start: 20190220, end: 20190323

REACTIONS (4)
  - Muscle rigidity [Recovered/Resolved]
  - Hypernatraemia [Recovered/Resolved]
  - Neuroleptic malignant syndrome [Recovered/Resolved]
  - Blood creatine phosphokinase increased [Recovered/Resolved]

NARRATIVE: CASE EVENT DATE: 20190323
